FAERS Safety Report 5816031-0 (Version None)
Quarter: 2008Q3

REPORT INFORMATION
  Report Type: 
  Country: None (occurrence: None)
  Receive Date: 20080721
  Receipt Date: 20080711
  Transmission Date: 20090109
  Serious: Yes (Other)
  Sender: FDA-Public Use
  Company Number: HU-ELI_LILLY_AND_COMPANY-HU200804007371

PATIENT
  Age: 58 Year
  Sex: Female

DRUGS (9)
  1. GEMZAR [Suspect]
     Indication: NON-SMALL CELL LUNG CANCER
     Dosage: 1250 MG/M2, OTHER
     Route: 042
     Dates: start: 20080418, end: 20080418
  2. PLATIDIAM [Concomitant]
     Indication: NON-SMALL CELL LUNG CANCER
     Dosage: 70 MG/M2, OTHER
     Route: 042
  3. ZOFRAN [Concomitant]
     Indication: NON-SMALL CELL LUNG CANCER
     Dosage: 4 MG, DAILY (1/D)
     Route: 042
  4. CERUCAL [Concomitant]
     Dosage: UNK UNK,  ONE TABLET 3/D
     Route: 048
  5. METYPRED [Concomitant]
     Dosage: 16 MG, DAILY (1/D)
     Route: 048
  6. XANAX [Concomitant]
     Dosage: 0.25 MG, 2/D
     Route: 048
  7. DIGOXIN [Concomitant]
     Dosage: 0.25 MG, DAILY (1/D)
     Route: 042
  8. DIGITALIS TAB [Concomitant]
     Indication: MYOCARDIAL INFARCTION
     Dosage: UNK, UNKNOWN
     Route: 065
  9. FRAXIPARINE [Concomitant]
     Indication: MYOCARDIAL INFARCTION
     Dosage: UNK, UNKNOWN
     Route: 065

REACTIONS (2)
  - CIRCULATORY COLLAPSE [None]
  - URTICARIA [None]
